FAERS Safety Report 6309343-8 (Version None)
Quarter: 2009Q3

REPORT INFORMATION
  Report Type: 
  Country: None (occurrence: None)
  Receive Date: 20090814
  Receipt Date: 20090810
  Transmission Date: 20100115
  Serious: Yes (Death, Other)
  Sender: FDA-Public Use
  Company Number: GB-ASTRAZENECA-2006GB00380

PATIENT
  Age: 74 Year
  Sex: Female

DRUGS (1)
  1. NOLVADEX [Suspect]
     Indication: BREAST CANCER
     Route: 048
     Dates: start: 19980225, end: 20030305

REACTIONS (2)
  - ENDOMETRIAL CANCER [None]
  - METASTATIC NEOPLASM [None]
